FAERS Safety Report 10389969 (Version 1)
Quarter: 2014Q3

REPORT INFORMATION
  Report Type: Spontaneous
  Country: AU (occurrence: AU)
  Receive Date: 20140818
  Receipt Date: 20140818
  Transmission Date: 20150326
  Serious: Yes (Other)
  Sender: FDA-Public Use
  Company Number: AU-009507513-1408AUS006931

PATIENT
  Sex: Female

DRUGS (1)
  1. IMPLANON [Suspect]
     Active Substance: ETONOGESTREL
     Dosage: UNK
     Route: 059

REACTIONS (6)
  - Device difficult to use [Not Recovered/Not Resolved]
  - General anaesthesia [Unknown]
  - Device deployment issue [Not Recovered/Not Resolved]
  - Medical device complication [Unknown]
  - Surgery [Unknown]
  - Incorrect drug administration duration [Unknown]
